FAERS Safety Report 20472436 (Version 1)
Quarter: 2022Q1

REPORT INFORMATION
  Report Type: Spontaneous
  Country: NL (occurrence: NL)
  Receive Date: 20220215
  Receipt Date: 20220215
  Transmission Date: 20220423
  Serious: Yes (Other)
  Sender: FDA-Public Use
  Company Number: NL-Accord-248928

PATIENT
  Age: 48 Year
  Sex: Female

DRUGS (1)
  1. METHOTREXATE [Suspect]
     Active Substance: METHOTREXATE
     Indication: Product used for unknown indication
     Dosage: 25/WEEK
     Route: 058

REACTIONS (3)
  - Injury associated with device [Recovered/Resolved]
  - Syringe issue [Recovered/Resolved]
  - Product substitution issue [Unknown]
